FAERS Safety Report 5126426-9 (Version None)
Quarter: 2006Q4

REPORT INFORMATION
  Report Type: 
  Country: None (occurrence: None)
  Receive Date: 20061010
  Receipt Date: 20060929
  Transmission Date: 20070319
  Serious: Yes (Hospitalization)
  Sender: FDA-Public Use
  Company Number: 2006118746

PATIENT
  Age: 70 Year
  Sex: Male
  Weight: 74.8435 kg

DRUGS (3)
  1. SINUTAB (PSEUDOEPHEDRINE) [Suspect]
     Indication: SINUS CONGESTION
     Dosage: ORAL
     Route: 048
     Dates: start: 20060401, end: 20060401
  2. GUAIFENESIN [Suspect]
     Indication: NASAL CONGESTION
     Dosage: 600 MG, ORAL
     Route: 048
     Dates: start: 20060101, end: 20060404
  3. DESLORATADINE [Suspect]
     Indication: SINUS CONGESTION
     Dosage: ORAL
     Route: 048
     Dates: start: 20060401, end: 20060401

REACTIONS (12)
  - ABDOMINAL DISTENSION [None]
  - ATRIOVENTRICULAR BLOCK THIRD DEGREE [None]
  - CARDIAC ARREST [None]
  - CARDIAC FAILURE CONGESTIVE [None]
  - HAEMORRHAGE INTRACRANIAL [None]
  - HEADACHE [None]
  - HYPERTENSION [None]
  - JOINT SWELLING [None]
  - OEDEMA PERIPHERAL [None]
  - RESPIRATORY FAILURE [None]
  - SINUS DISORDER [None]
  - SUBARACHNOID HAEMORRHAGE [None]
